FAERS Safety Report 4860891-7 (Version None)
Quarter: 2005Q4

REPORT INFORMATION
  Report Type: 
  Country: None (occurrence: None)
  Receive Date: 20051220
  Receipt Date: 20051117
  Transmission Date: 20060501
  Serious: Yes (Other)
  Sender: FDA-Public Use
  Company Number: PHEH2005US12689

PATIENT
  Age: 47 Year
  Sex: Female
  Weight: 124 kg

DRUGS (3)
  1. KEPPRA [Concomitant]
     Indication: EPILEPSY
     Dosage: 1500 MG, BID
     Route: 048
     Dates: start: 20050101
  2. TRANXENE [Concomitant]
     Indication: EPILEPSY
     Dosage: 7.5 MG, BID
     Route: 048
     Dates: start: 20040921
  3. TEGRETOL-XR [Suspect]
     Indication: EPILEPSY
     Dosage: 600 MG, BID
     Route: 048

REACTIONS (3)
  - BLOOD CALCIUM DECREASED [None]
  - BONE DENSITY DECREASED [None]
  - OSTEOPOROSIS [None]
